FAERS Safety Report 5798449-8 (Version None)
Quarter: 2008Q3

REPORT INFORMATION
  Report Type: 
  Country: None (occurrence: None)
  Receive Date: 20080701
  Receipt Date: 20080701
  Transmission Date: 20090109
  Serious: No
  Sender: FDA-Public Use
  Company Number: None

PATIENT

DRUGS (2)
  1. CHILDREN'S ZYRTEC ALLERGY [Suspect]
     Dosage: SYRUP
  2. CHILDREN'S ZYRTEC HIVES RELIEF [Suspect]
     Dosage: SYRUP

REACTIONS (2)
  - CIRCUMSTANCE OR INFORMATION CAPABLE OF LEADING TO MEDICATION ERROR [None]
  - MEDICATION ERROR [None]
